FAERS Safety Report 16230084 (Version 2)
Quarter: 2019Q2

REPORT INFORMATION
  Report Type: Spontaneous
  Country: US (occurrence: US)
  Receive Date: 20190423
  Receipt Date: 20190517
  Transmission Date: 20190711
  Serious: No
  Sender: FDA-Public Use
  Company Number: US-BAUSCH-BL-2019-010887

PATIENT
  Age: 82 Year
  Sex: Male

DRUGS (1)
  1. ARESTIN [Suspect]
     Active Substance: MINOCYCLINE HYDROCHLORIDE
     Indication: PERIODONTAL DISEASE
     Dosage: PLACED IN 3 SPOTS IN THE MOUTH, 1 TIME, IN 3 POCKETS
     Route: 065
     Dates: start: 20190306

REACTIONS (2)
  - Chapped lips [Recovered/Resolved]
  - Swelling face [Recovered/Resolved]

NARRATIVE: CASE EVENT DATE: 201903
